FAERS Safety Report 24027974 (Version 1)
Quarter: 2024Q2

REPORT INFORMATION
  Report Type: Spontaneous
  Country: US (occurrence: US)
  Receive Date: 20240628
  Receipt Date: 20240628
  Transmission Date: 20240716
  Serious: Yes (Life-Threatening, Hospitalization, Other)
  Sender: FDA-Public Use
  Company Number: US-MLMSERVICE-20240613-PI089834-00101-4

PATIENT

DRUGS (1)
  1. CISPLATIN [Suspect]
     Active Substance: CISPLATIN
     Indication: Hepatoblastoma
     Dosage: UNKNOWN, MONOTHERAPY
     Route: 065

REACTIONS (3)
  - Cardiac arrest [Unknown]
  - Bradycardia [Unknown]
  - Infection [Unknown]
